FAERS Safety Report 7793196-5 (Version None)
Quarter: 2011Q4

REPORT INFORMATION
  Report Type: 
  Country: None (occurrence: None)
  Receive Date: 20111003
  Receipt Date: 20110928
  Transmission Date: 20120403
  Serious: Yes (Other)
  Sender: FDA-Public Use
  Company Number: IE-AMGEN-IRLSP2011049988

PATIENT
  Age: 48 Year
  Sex: Female

DRUGS (5)
  1. NEULASTA [Suspect]
     Indication: BREAST CANCER
     Dosage: UNK
     Dates: start: 20110921
  2. CYCLOPHOSPHAMIDE [Concomitant]
     Indication: BREAST CANCER
     Dosage: UNK
     Dates: start: 20110919
  3. TAXOL [Concomitant]
     Indication: BREAST CANCER
     Dosage: UNK
     Dates: start: 20110919
  4. STERIOD [Concomitant]
  5. MEFENAMIC ACID [Concomitant]
     Dosage: UNK
     Dates: start: 20110921

REACTIONS (4)
  - MUSCULOSKELETAL STIFFNESS [None]
  - INFLUENZA LIKE ILLNESS [None]
  - VISUAL IMPAIRMENT [None]
  - SWOLLEN TONGUE [None]
